FAERS Safety Report 8872242 (Version 1)
Quarter: 2012Q4

REPORT INFORMATION
  Report Type: 
  Country: US (occurrence: US)
  Receive Date: 20121026
  Receipt Date: 20121026
  Transmission Date: 20130627
  Serious: No
  Sender: FDA-Public Use
  Company Number: US-AMGEN-USASP2012051683

PATIENT
  Sex: Female
  Weight: 68.93 kg

DRUGS (15)
  1. ENBREL [Suspect]
     Indication: PRODUCT USED FOR UNKNOWN INDICATION
     Dosage: UNK
     Route: 058
  2. ORENCIA [Suspect]
     Dosage: 125 mg, qwk
     Route: 058
  3. CYMBALTA [Concomitant]
     Dosage: 20 mg, UNK
  4. NORVASC [Concomitant]
     Dosage: 2.5 mg, UNK
  5. NEURONTIN [Concomitant]
     Dosage: 300 mg, UNK
  6. VICODIN ES [Concomitant]
     Dosage: 7.5-750
  7. DIGOXIN [Concomitant]
     Dosage: 0.25 mg, UNK
  8. LISINOPRIL [Concomitant]
     Dosage: 30 mg, UNK
  9. SIMVASTATIN +PHARMA [Concomitant]
     Dosage: 10 mg, UNK
  10. METFORMIN [Concomitant]
     Dosage: 1000 mg, UNK
  11. PACERONE [Concomitant]
     Dosage: 100 mg, UNK
  12. PLAVIX [Concomitant]
     Dosage: 75 mg, UNK
  13. IRON [Concomitant]
     Dosage: 18 mg, UNK
  14. COLACE [Concomitant]
     Dosage: 50 mg, UNK
  15. MULTICAPS [Concomitant]

REACTIONS (1)
  - Drug ineffective [Unknown]
